FAERS Safety Report 7782375-9 (Version None)
Quarter: 2011Q3

REPORT INFORMATION
  Report Type: 
  Country: None (occurrence: None)
  Receive Date: 20110927
  Receipt Date: 20110914
  Transmission Date: 20111222
  Serious: Yes (Life-Threatening, Hospitalization, Other)
  Sender: FDA-Public Use
  Company Number: US-ELI_LILLY_AND_COMPANY-US201109003951

PATIENT
  Age: 3 Year
  Sex: Male

DRUGS (3)
  1. METHYLPHENIDATE [Concomitant]
     Indication: ATTENTION DEFICIT/HYPERACTIVITY DISORDER
  2. PROZAC [Suspect]
     Dosage: 240 MG, OTHER
     Route: 048
  3. CLONIDINE [Concomitant]
     Indication: ATTENTION DEFICIT/HYPERACTIVITY DISORDER

REACTIONS (8)
  - BRAIN OEDEMA [None]
  - MYDRIASIS [None]
  - HYPERHIDROSIS [None]
  - HYPERTENSION [None]
  - ACCIDENTAL OVERDOSE [None]
  - APHASIA [None]
  - MUSCLE RIGIDITY [None]
  - INAPPROPRIATE ANTIDIURETIC HORMONE SECRETION [None]
